FAERS Safety Report 8916164 (Version 1)
Quarter: 2012Q4

REPORT INFORMATION
  Report Type: 
  Country: US (occurrence: US)
  Receive Date: 20121120
  Receipt Date: 20121120
  Transmission Date: 20130627
  Serious: Yes (Hospitalization)
  Sender: FDA-Public Use
  Company Number: US-GLAXOSMITHKLINE-A1001323A

PATIENT
  Age: 65 Year
  Sex: Female

DRUGS (7)
  1. ADVAIR [Suspect]
     Indication: CHRONIC OBSTRUCTIVE PULMONARY DISEASE
     Dosage: 1PUFF Twice per day
     Route: 055
     Dates: start: 20120705
  2. BLOOD PRESSURE MEDICATION [Concomitant]
  3. THYROID MEDICATION [Concomitant]
  4. LASIX [Concomitant]
  5. NEXIUM [Concomitant]
  6. SINUS MEDICINE [Concomitant]
  7. VITAMINS [Concomitant]

REACTIONS (3)
  - Pneumothorax [Unknown]
  - Nasopharyngitis [Unknown]
  - Cough [Unknown]
